FAERS Safety Report 23284787 (Version 1)
Quarter: 2023Q4

REPORT INFORMATION
  Report Type: Spontaneous
  Country: US (occurrence: US)
  Receive Date: 20231211
  Receipt Date: 20231211
  Transmission Date: 20240109
  Serious: No
  Sender: FDA-Public Use
  Company Number: US-PERRIGO-23US012071

PATIENT
  Age: 83 Year
  Sex: Female
  Weight: 65.76 kg

DRUGS (4)
  1. GUAIFENESIN [Suspect]
     Active Substance: GUAIFENESIN
     Indication: Increased upper airway secretion
     Dosage: 600 MG, QHS
     Route: 048
     Dates: start: 20231010, end: 20231015
  2. ATIVAN [Concomitant]
     Active Substance: LORAZEPAM
     Indication: Product used for unknown indication
     Dosage: UNKNOWN, UNKNOWN
     Route: 065
  3. MECLIZINE [Concomitant]
     Active Substance: MECLIZINE HYDROCHLORIDE
     Indication: Dizziness
     Dosage: UNKNOWN, UNKNOWN
     Route: 065
  4. LORAZEPAM [Concomitant]
     Active Substance: LORAZEPAM
     Indication: Product used for unknown indication
     Dosage: UNK
     Route: 065

REACTIONS (4)
  - Decreased appetite [Not Recovered/Not Resolved]
  - Headache [Recovering/Resolving]
  - Dry mouth [Not Recovered/Not Resolved]
  - Ageusia [Recovered/Resolved]

NARRATIVE: CASE EVENT DATE: 20231014
